FAERS Safety Report 8453248-3 (Version None)
Quarter: 2012Q2

REPORT INFORMATION
  Report Type: 
  Country: None (occurrence: None)
  Receive Date: 20120620
  Receipt Date: 20120511
  Transmission Date: 20120825
  Serious: No
  Sender: FDA-Public Use
  Company Number: US-VERTEX PHARMACEUTICALS INC.-AE-2012-006936

PATIENT
  Sex: Female
  Weight: 72.64 kg

DRUGS (5)
  1. INCIVEK [Suspect]
     Indication: HEPATITIS C
     Route: 048
     Dates: start: 20120401
  2. ACETAMINOPHEN [Concomitant]
     Indication: PAIN
  3. PEGASYS [Concomitant]
     Indication: HEPATITIS C
     Route: 058
     Dates: start: 20120401
  4. MULTI-VITAMIN [Concomitant]
     Route: 048
  5. RIBAVIRIN [Concomitant]
     Indication: HEPATITIS C
     Route: 048
     Dates: start: 20120401

REACTIONS (3)
  - INCORRECT DOSE ADMINISTERED [None]
  - HEADACHE [None]
  - ANORECTAL DISCOMFORT [None]
